FAERS Safety Report 8720451 (Version 2)
Quarter: 2012Q4

REPORT INFORMATION
  Report Type: 
  Country: US (occurrence: US)
  Receive Date: 20120813
  Receipt Date: 20120913
  Transmission Date: 20130627
  Serious: No
  Sender: FDA-Public Use
  Company Number: US-PFIZER INC-2012195283

PATIENT
  Age: 58 Year
  Sex: Female
  Weight: 113.38 kg

DRUGS (1)
  1. LYRICA [Suspect]
     Indication: FIBROMYALGIA
     Dosage: 225 mg PM
     Dates: start: 2004

REACTIONS (3)
  - Dizziness [Recovered/Resolved]
  - Sleep disorder [Unknown]
  - Therapeutic response unexpected [Unknown]
